FAERS Safety Report 5441694-1 (Version None)
Quarter: 2007Q3

REPORT INFORMATION
  Report Type: 
  Country: None (occurrence: None)
  Receive Date: 20070904
  Receipt Date: 20070829
  Transmission Date: 20080115
  Serious: Yes (Hospitalization, Other)
  Sender: FDA-Public Use
  Company Number: FR-BAYER-200610594BFR

PATIENT
  Age: 40 Year
  Sex: Male

DRUGS (12)
  1. SORAFENIB [Suspect]
     Indication: RENAL CELL CARCINOMA STAGE UNSPECIFIED
     Dosage: AS USED: 400 MG  UNIT DOSE: 200 MG
     Route: 048
     Dates: start: 20060426, end: 20060829
  2. SKENAN [Concomitant]
     Indication: CHEST PAIN
     Route: 048
     Dates: start: 20051101
  3. ACTISKENAN [Concomitant]
     Indication: CHEST PAIN
     Route: 048
     Dates: start: 20051101
  4. APRANAX [Concomitant]
     Indication: CHEST PAIN
     Route: 048
     Dates: start: 20060301, end: 20060426
  5. SOLU-MEDROL [Concomitant]
     Indication: CHEST PAIN
     Route: 048
     Dates: start: 20060427, end: 20060530
  6. SOLU-MEDROL [Concomitant]
     Route: 048
     Dates: start: 20060530
  7. NEXIUM [Concomitant]
     Indication: PROPHYLAXIS
     Route: 048
     Dates: start: 20051101
  8. ZOFRAN [Concomitant]
     Indication: PROPHYLAXIS OF NAUSEA AND VOMITING
     Route: 048
     Dates: start: 20060421
  9. NEORECORMON [Concomitant]
     Indication: UNEVALUABLE EVENT
     Route: 065
  10. XANAX [Concomitant]
     Indication: INSOMNIA
     Route: 048
     Dates: start: 20051101
  11. DEXERYL [Concomitant]
     Indication: RASH
     Route: 065
     Dates: start: 20050530
  12. SUTENT [Concomitant]
     Indication: UNEVALUABLE EVENT
     Route: 065
     Dates: start: 20060901

REACTIONS (3)
  - ACUTE RESPIRATORY DISTRESS SYNDROME [None]
  - DYSPNOEA [None]
  - GENERAL PHYSICAL HEALTH DETERIORATION [None]
